FAERS Safety Report 25668544 (Version 2)
Quarter: 2025Q3

REPORT INFORMATION
  Report Type: Spontaneous
  Country: US (occurrence: US)
  Receive Date: 20250812
  Receipt Date: 20250902
  Transmission Date: 20251021
  Serious: Yes (Death, Hospitalization)
  Sender: TEVA
  Company Number: US-TEVA-VS-3359770

PATIENT
  Age: 39 Year
  Sex: Male

DRUGS (5)
  1. DEXAMETHASONE [Suspect]
     Active Substance: DEXAMETHASONE
     Indication: Kaposi sarcoma inflammatory cytokine syndrome
     Route: 065
  2. GANCICLOVIR [Suspect]
     Active Substance: GANCICLOVIR
     Indication: Cytomegalovirus viraemia
     Route: 065
  3. TOCILIZUMAB [Suspect]
     Active Substance: TOCILIZUMAB
     Indication: Kaposi sarcoma inflammatory cytokine syndrome
     Route: 065
  4. DOXORUBICIN HYDROCHLORIDE [Suspect]
     Active Substance: DOXORUBICIN HYDROCHLORIDE
     Indication: Kaposi sarcoma inflammatory cytokine syndrome
     Route: 065
  5. RITUXIMAB [Suspect]
     Active Substance: RITUXIMAB
     Indication: Kaposi sarcoma inflammatory cytokine syndrome
     Route: 065

REACTIONS (1)
  - Drug ineffective [Fatal]
